FAERS Safety Report 16613685 (Version 1)
Quarter: 2019Q3

REPORT INFORMATION
  Report Type: Spontaneous
  Country: US (occurrence: US)
  Receive Date: 20190722
  Receipt Date: 20190722
  Transmission Date: 20191004
  Serious: No
  Sender: FDA-Public Use
  Company Number: None

PATIENT
  Age: 42 Year
  Sex: Female
  Weight: 54.9 kg

DRUGS (11)
  1. OMEPRAZOLE DR 40 MG CAPSULE [Suspect]
     Active Substance: OMEPRAZOLE
     Indication: ASTHMA
     Route: 048
     Dates: start: 20190626, end: 20190704
  2. SERTRALINE [Concomitant]
     Active Substance: SERTRALINE HYDROCHLORIDE
  3. LISINOPRIL. [Concomitant]
     Active Substance: LISINOPRIL
  4. PROAIR HFA [Concomitant]
     Active Substance: ALBUTEROL SULFATE
  5. OXYBUTYNIN. [Concomitant]
     Active Substance: OXYBUTYNIN CHLORIDE
  6. ZANTAC [Concomitant]
     Active Substance: RANITIDINE HYDROCHLORIDE
  7. CLARITIN-D NOS [Concomitant]
     Active Substance: LORATADINE\PSEUDOEPHEDRINE SULFATE
  8. LO LOESTRIN FE [Concomitant]
     Active Substance: ETHINYL ESTRADIOL\NORETHINDRONE ACETATE
  9. QVAR [Concomitant]
     Active Substance: BECLOMETHASONE DIPROPIONATE
  10. NASACORT [Concomitant]
     Active Substance: TRIAMCINOLONE ACETONIDE
  11. OMEPRAZOLE DR 40 MG CAPSULE [Suspect]
     Active Substance: OMEPRAZOLE
     Indication: DYSPEPSIA
     Route: 048
     Dates: start: 20190626, end: 20190704

REACTIONS (17)
  - Blood pressure systolic increased [None]
  - Red blood cell count increased [None]
  - Clostridium test positive [None]
  - Heart rate increased [None]
  - Monocyte count increased [None]
  - Dehydration [None]
  - Dizziness [None]
  - Neutrophil count increased [None]
  - Renal cyst [None]
  - Diarrhoea [None]
  - Blood sodium decreased [None]
  - Albumin globulin ratio decreased [None]
  - Colitis [None]
  - Asthenia [None]
  - Haemoglobin increased [None]
  - Blood glucose increased [None]
  - Blood albumin decreased [None]

NARRATIVE: CASE EVENT DATE: 20190708
